FAERS Safety Report 11571830 (Version 1)
Quarter: 2015Q3

REPORT INFORMATION
  Report Type: Spontaneous
  Country: US (occurrence: US)
  Receive Date: 20150916
  Receipt Date: 20150916
  Transmission Date: 20151125
  Serious: No
  Sender: FDA-Public Use
  Company Number: US-ELI_LILLY_AND_COMPANY-US200910000534

PATIENT
  Sex: Female

DRUGS (3)
  1. ACTONEL [Concomitant]
     Active Substance: RISEDRONATE SODIUM
  2. FORTEO [Suspect]
     Active Substance: TERIPARATIDE
     Dosage: UNK, UNK
     Dates: start: 200909
  3. FORTEO [Suspect]
     Active Substance: TERIPARATIDE
     Dosage: UNK, UNK
     Dates: start: 200908, end: 200909

REACTIONS (10)
  - Spinal column injury [Unknown]
  - Ligament sprain [Unknown]
  - Pruritus [Recovered/Resolved]
  - Fall [Unknown]
  - Myositis [Unknown]
  - Musculoskeletal stiffness [Unknown]
  - Feeling abnormal [Recovered/Resolved]
  - Head injury [Unknown]
  - Sleep disorder due to a general medical condition [Recovered/Resolved]
  - Pain in extremity [Recovered/Resolved]

NARRATIVE: CASE EVENT DATE: 2009
